FAERS Safety Report 17151841 (Version 1)
Quarter: 2019Q4

REPORT INFORMATION
  Report Type: Spontaneous
  Country: US (occurrence: US)
  Receive Date: 20191121
  Receipt Date: 20191121
  Transmission Date: 20200122
  Serious: Yes (Hospitalization)
  Sender: FDA-Public Use
  Company Number: None

PATIENT
  Age: 78 Year
  Sex: Male

DRUGS (13)
  1. APAP/CODEINE [Concomitant]
     Active Substance: ACETAMINOPHEN\CODEINE PHOSPHATE
  2. EZETIMBE [Concomitant]
     Active Substance: EZETIMIBE
  3. ESBRIET [Suspect]
     Active Substance: PIRFENIDONE
     Indication: IDIOPATHIC PULMONARY FIBROSIS
     Route: 048
     Dates: start: 20161201
  4. ATORVASTATIN [Concomitant]
     Active Substance: ATORVASTATIN
  5. MEPRAZOLE [Concomitant]
  6. TAMSULOSIN [Concomitant]
     Active Substance: TAMSULOSIN
  7. BACLOFEN. [Concomitant]
     Active Substance: BACLOFEN
  8. MELOXICAM. [Concomitant]
     Active Substance: MELOXICAM
  9. PREGABALIN. [Concomitant]
     Active Substance: PREGABALIN
  10. TRAMADOL HCL [Concomitant]
     Active Substance: TRAMADOL HYDROCHLORIDE
  11. LACTULOSE. [Concomitant]
     Active Substance: LACTULOSE
  12. MIDODRINE [Concomitant]
     Active Substance: MIDODRINE
  13. CLOPIDOGREL [Concomitant]
     Active Substance: CLOPIDOGREL BISULFATE

REACTIONS (1)
  - Medical device removal [None]

NARRATIVE: CASE EVENT DATE: 201910
